FAERS Safety Report 7119569-1 (Version None)
Quarter: 2010Q4

REPORT INFORMATION
  Report Type: 
  Country: None (occurrence: None)
  Receive Date: 20101123
  Receipt Date: 20101115
  Transmission Date: 20110411
  Serious: Yes (Other)
  Sender: FDA-Public Use
  Company Number: US-TEVA-255503USA

PATIENT
  Age: 23 Year
  Sex: Male

DRUGS (1)
  1. ISONIAZID TABLET 100MG [Suspect]
     Indication: TUBERCULIN TEST POSITIVE

REACTIONS (1)
  - ANAPHYLACTIC REACTION [None]
